FAERS Safety Report 22389917 (Version 2)
Quarter: 2023Q2

REPORT INFORMATION
  Report Type: Spontaneous
  Country: US (occurrence: US)
  Receive Date: 20230531
  Receipt Date: 20230630
  Transmission Date: 20230721
  Serious: Yes (Other)
  Sender: FDA-Public Use
  Company Number: US-BRISTOL-MYERS SQUIBB COMPANY-2023-075277

PATIENT
  Age: 76 Year
  Sex: Female
  Weight: 58.5 kg

DRUGS (1)
  1. REVLIMID [Suspect]
     Active Substance: LENALIDOMIDE
     Indication: Follicular lymphoma
     Dosage: FREQUENCY: 3 WEEKS ON, 1 WEEK OFF
     Route: 048

REACTIONS (6)
  - Angioedema [Unknown]
  - Anxiety [Unknown]
  - Diarrhoea [Unknown]
  - Constipation [Unknown]
  - Dyspepsia [Unknown]
  - Insomnia [Unknown]
